FAERS Safety Report 14579429 (Version 10)
Quarter: 2018Q4

REPORT INFORMATION
  Report Type: Report from Study
  Country: US (occurrence: US)
  Receive Date: 20180227
  Receipt Date: 20181120
  Transmission Date: 20190204
  Serious: Yes (Hospitalization)
  Sender: FDA-Public Use
  Company Number: US-ACTELION-A-NJ2017-163990

PATIENT
  Age: 59 Year
  Sex: Female
  Weight: 106.12 kg

DRUGS (18)
  1. REMODULIN [Suspect]
     Active Substance: TREPROSTINIL
     Dosage: 0.032 ML/HR, UNK
     Route: 058
  2. LETAIRIS [Suspect]
     Active Substance: AMBRISENTAN
     Indication: PRODUCT USED FOR UNKNOWN INDICATION
     Route: 065
  3. UPTRAVI [Suspect]
     Active Substance: SELEXIPAG
     Indication: PULMONARY ARTERIAL HYPERTENSION
     Dosage: 800 MCG, BID
     Route: 048
     Dates: start: 20171225
  4. ORENITRAM [Suspect]
     Active Substance: TREPROSTINIL
     Indication: PRODUCT USED FOR UNKNOWN INDICATION
     Route: 065
  5. REMODULIN [Suspect]
     Active Substance: TREPROSTINIL
     Dosage: 83 NG/KG, PER MIN
     Route: 058
  6. ADEMPAS [Concomitant]
     Active Substance: RIOCIGUAT
     Dosage: UNK
     Dates: start: 20180824
  7. UPTRAVI [Suspect]
     Active Substance: SELEXIPAG
     Dosage: 400 MCG, BID
     Route: 048
  8. UPTRAVI [Suspect]
     Active Substance: SELEXIPAG
     Dosage: UNK
     Route: 048
     Dates: start: 20171204
  9. UPTRAVI [Suspect]
     Active Substance: SELEXIPAG
     Dosage: 1600 MCG, BID
     Route: 048
  10. UPTRAVI [Suspect]
     Active Substance: SELEXIPAG
     Dosage: 200 MCG, BID
     Route: 048
  11. REMODULIN [Suspect]
     Active Substance: TREPROSTINIL
     Indication: PULMONARY ARTERIAL HYPERTENSION
     Dosage: 96 NG/KG, PER MIN
     Route: 058
     Dates: start: 20110815
  12. REMODULIN [Suspect]
     Active Substance: TREPROSTINIL
     Dosage: 93 NG/KG, PER MIN
     Route: 058
  13. UPTRAVI [Suspect]
     Active Substance: SELEXIPAG
     Dosage: 1200 MCG, BID
     Route: 048
  14. REMODULIN [Suspect]
     Active Substance: TREPROSTINIL
     Dosage: 63 NG/KG, PER MIN
     Route: 058
  15. REMODULIN [Suspect]
     Active Substance: TREPROSTINIL
     Dosage: 53 NG/KG, PER MIN
     Route: 058
  16. ADCIRCA [Suspect]
     Active Substance: TADALAFIL
     Indication: PRODUCT USED FOR UNKNOWN INDICATION
     Route: 065
  17. UPTRAVI [Suspect]
     Active Substance: SELEXIPAG
     Dosage: 1400 MCG, BID
     Route: 048
  18. OPSUMIT [Suspect]
     Active Substance: MACITENTAN
     Indication: PULMONARY ARTERIAL HYPERTENSION
     Dosage: 10 MG, QD
     Route: 048
     Dates: start: 20171109

REACTIONS (36)
  - Pulmonary arterial hypertension [Unknown]
  - Dizziness [Unknown]
  - Device dislocation [Unknown]
  - Nausea [Unknown]
  - Diabetes mellitus [Unknown]
  - Peripheral swelling [Unknown]
  - Bone pain [Unknown]
  - Erythema [Unknown]
  - Adverse event [Unknown]
  - Condition aggravated [Unknown]
  - Feeling abnormal [Unknown]
  - Headache [Unknown]
  - Dyspnoea [Unknown]
  - Impaired gastric emptying [Unknown]
  - Migraine [Unknown]
  - Infusion site scar [Unknown]
  - Pain [Unknown]
  - Product dose omission [Unknown]
  - Diabetic neuropathy [Unknown]
  - Panic attack [Unknown]
  - Dyspnoea exertional [Unknown]
  - Feeling cold [Unknown]
  - Nasopharyngitis [Unknown]
  - Burning sensation [Unknown]
  - Chest discomfort [Unknown]
  - Nasal congestion [Unknown]
  - Thalassaemia [Unknown]
  - Skin discolouration [Unknown]
  - Malabsorption from administration site [Unknown]
  - Drug ineffective [Unknown]
  - Swelling [Unknown]
  - Peripheral coldness [Recovered/Resolved]
  - Incorrect dose administered [Recovered/Resolved]
  - Arthralgia [Unknown]
  - Pruritus [Unknown]
  - Weight increased [Unknown]

NARRATIVE: CASE EVENT DATE: 20171204
